FAERS Safety Report 26155806 (Version 1)
Quarter: 2025Q4

REPORT INFORMATION
  Report Type: Spontaneous
  Country: US (occurrence: US)
  Receive Date: 20251215
  Receipt Date: 20251215
  Transmission Date: 20260117
  Serious: Yes (Other)
  Sender: ASTELLAS
  Company Number: US-ASTELLAS-2025-AER-068132

PATIENT
  Age: 65 Year
  Sex: Female

DRUGS (4)
  1. TACROLIMUS [Suspect]
     Active Substance: TACROLIMUS
     Indication: Renal transplant
     Dosage: LEVEL 6-8 NG/ML
     Route: 065
     Dates: start: 2016
  2. MYFORTIC [Concomitant]
     Active Substance: MYCOPHENOLATE SODIUM
     Indication: Renal transplant
     Route: 065
     Dates: start: 2021
  3. MYFORTIC [Concomitant]
     Active Substance: MYCOPHENOLATE SODIUM
     Route: 065
     Dates: start: 2016
  4. PREDNISONE [Concomitant]
     Active Substance: PREDNISONE
     Indication: Renal transplant
     Route: 065
     Dates: start: 2016

REACTIONS (5)
  - Norovirus infection [Recovering/Resolving]
  - Type III immune complex mediated reaction [Unknown]
  - Glomerulonephritis membranoproliferative [Unknown]
  - Infection [Unknown]
  - Disease recurrence [Unknown]
